FAERS Safety Report 13357472 (Version 4)
Quarter: 2017Q2

REPORT INFORMATION
  Report Type: Report from Study
  Country: JP (occurrence: JP)
  Receive Date: 20170322
  Receipt Date: 20170411
  Transmission Date: 20170830
  Serious: Yes (Hospitalization)
  Sender: FDA-Public Use
  Company Number: JP-ROCHE-1909056

PATIENT
  Age: 62 Year
  Sex: Male
  Weight: 57 kg

DRUGS (15)
  1. DOMPERIDONE [Concomitant]
     Active Substance: DOMPERIDONE
     Indication: NAUSEA
     Route: 048
     Dates: start: 20170221, end: 20170308
  2. NEXIUM [Concomitant]
     Active Substance: ESOMEPRAZOLE MAGNESIUM
     Route: 048
     Dates: start: 20170221, end: 20170322
  3. EMEND [Concomitant]
     Active Substance: APREPITANT
     Indication: PROPHYLAXIS OF NAUSEA AND VOMITING
     Route: 048
     Dates: start: 20170228, end: 20170228
  4. CODEINE PHOSPHATE [Concomitant]
     Active Substance: CODEINE PHOSPHATE
     Indication: COUGH
     Route: 048
     Dates: start: 20170316
  5. ATEZOLIZUMAB [Suspect]
     Active Substance: ATEZOLIZUMAB
     Indication: SMALL CELL LUNG CANCER EXTENSIVE STAGE
     Dosage: MOST RECENT DOSE PRIOR TO AE ONSET: 28/FEB/2017 (1200 MG) AT 1315 HOURS
     Route: 042
     Dates: start: 20170228
  6. EMEND [Concomitant]
     Active Substance: APREPITANT
     Route: 048
     Dates: start: 20170328, end: 20170328
  7. MAGNESIUM OXIDE. [Concomitant]
     Active Substance: MAGNESIUM OXIDE
     Indication: CONSTIPATION
     Route: 048
     Dates: start: 20170216, end: 20170322
  8. CALONAL [Concomitant]
     Active Substance: ACETAMINOPHEN
     Route: 048
     Dates: start: 20170221, end: 20170308
  9. ETOPOSIDE. [Suspect]
     Active Substance: ETOPOSIDE
     Indication: SMALL CELL LUNG CANCER EXTENSIVE STAGE
     Dosage: STANDARD DOSING PER PROTOCOL?MOST RECENT DOSE PRIOR TO AE ONSET: 02/MAR/2017 AT 1335 HOURS (150 MG)
     Route: 042
     Dates: start: 20170228
  10. CALONAL [Concomitant]
     Active Substance: ACETAMINOPHEN
     Indication: CHEST PAIN
     Route: 048
     Dates: start: 20170218, end: 20170219
  11. SENNOSIDE [Concomitant]
     Active Substance: SENNOSIDES
     Indication: CONSTIPATION
     Route: 048
     Dates: start: 20170123, end: 20170322
  12. CELECOX [Concomitant]
     Active Substance: CELECOXIB
     Indication: CHEST PAIN
     Route: 048
     Dates: start: 20170218, end: 20170315
  13. CARBOPLATIN. [Suspect]
     Active Substance: CARBOPLATIN
     Indication: SMALL CELL LUNG CANCER EXTENSIVE STAGE
     Dosage: STANDARD DOSING PER PROTOCOL?CONCENTRATION-TIME CURVE (AUC) OF 5 MG/ML/MIN?MOST RECENT DOSE PRIOR TO
     Route: 042
     Dates: start: 20170228
  14. EMEND [Concomitant]
     Active Substance: APREPITANT
     Route: 048
     Dates: start: 20170301, end: 20170302
  15. METEBANYL [Concomitant]
     Indication: COUGH
     Route: 048
     Dates: start: 20170125, end: 20170315

REACTIONS (1)
  - Neutropenia [Recovered/Resolved]

NARRATIVE: CASE EVENT DATE: 20170310
